FAERS Safety Report 18383789 (Version 1)
Quarter: 2020Q4

REPORT INFORMATION
  Report Type: Spontaneous
  Country: FR (occurrence: FR)
  Receive Date: 20201014
  Receipt Date: 20201014
  Transmission Date: 20210114
  Serious: Yes (Hospitalization)
  Sender: FDA-Public Use
  Company Number: FR-PFIZER INC-2020395581

PATIENT
  Age: 15 Year
  Sex: Female

DRUGS (2)
  1. TRAMADOL HYDROCHLORIDE. [Suspect]
     Active Substance: TRAMADOL HYDROCHLORIDE
     Dosage: UNK
     Route: 048
     Dates: start: 2020
  2. XANAX [Suspect]
     Active Substance: ALPRAZOLAM
     Dosage: UNK
     Route: 048
     Dates: start: 2020

REACTIONS (6)
  - Depressed mood [Recovering/Resolving]
  - Off label use [Unknown]
  - Intentional product misuse [Recovering/Resolving]
  - Product use issue [Unknown]
  - Suicidal ideation [Recovering/Resolving]
  - Substance use [Recovering/Resolving]

NARRATIVE: CASE EVENT DATE: 2020
